FAERS Safety Report 15747316 (Version 1)
Quarter: 2018Q4

REPORT INFORMATION
  Report Type: Spontaneous
  Country: US (occurrence: US)
  Receive Date: 20181220
  Receipt Date: 20181220
  Transmission Date: 20190205
  Serious: No
  Sender: FDA-Public Use
  Company Number: US-AVADEL SPECIALTY PHARMACEUTICALS, LLC-2018AVA00334

PATIENT
  Age: 76 Year
  Sex: Female

DRUGS (6)
  1. NOCTIVA [Suspect]
     Active Substance: DESMOPRESSIN ACETATE
     Indication: NOCTURIA
     Dosage: 1.66 ?G, 1X/DAY APPROXIMATELY 30 MINUTES BEFORE BEDTIME
     Route: 045
     Dates: start: 20180823, end: 20180905
  2. TAMOXIFEN [Concomitant]
     Active Substance: TAMOXIFEN
  3. PROCTOCREAM [Concomitant]
  4. MULTI VITAMIN [Concomitant]
     Active Substance: VITAMINS
  5. MINERAL TABLET [Concomitant]
  6. CALCIUM + VITAMIN D [Concomitant]
     Active Substance: CALCIUM\VITAMIN D

REACTIONS (1)
  - Blood sodium decreased [Recovered/Resolved]

NARRATIVE: CASE EVENT DATE: 20180904
